FAERS Safety Report 6164691-X (Version None)
Quarter: 2009Q2

REPORT INFORMATION
  Report Type: 
  Country: None (occurrence: None)
  Receive Date: 20090423
  Receipt Date: 20080423
  Transmission Date: 20091009
  Serious: No
  Sender: FDA-Public Use
  Company Number: US-KINGPHARMUSA00001-K200800487

PATIENT
  Sex: Female
  Weight: 94.331 kg

DRUGS (3)
  1. TAPAZOLE [Suspect]
     Indication: THYROID DISORDER
     Dosage: 5 MG, QD
     Route: 048
     Dates: start: 20060101
  2. LYRICA [Suspect]
     Indication: FIBROMYALGIA
     Dosage: 100 MG, TID
     Route: 048
     Dates: start: 20071001, end: 20071201
  3. ZYRTEC [Concomitant]
     Indication: ASTHMA

REACTIONS (3)
  - SENSATION OF FOREIGN BODY [None]
  - SWELLING FACE [None]
  - WEIGHT INCREASED [None]
